FAERS Safety Report 4767602-4 (Version None)
Quarter: 2005Q3

REPORT INFORMATION
  Report Type: 
  Country: None (occurrence: None)
  Receive Date: 20050913
  Receipt Date: 20050415
  Transmission Date: 20060218
  Serious: Yes (Hospitalization, Disabling)
  Sender: FDA-Public Use
  Company Number: US-MERCK-0504USA03346

PATIENT
  Age: 41 Year
  Sex: Male
  Weight: 86 kg

DRUGS (10)
  1. VIOXX [Suspect]
     Indication: ARTHRALGIA
     Route: 048
     Dates: start: 20010701, end: 20030301
  2. VIOXX [Suspect]
     Indication: MONARTHRITIS
     Route: 048
     Dates: start: 20010701, end: 20030301
  3. ACYCLOVIR [Concomitant]
     Route: 065
  4. ACYCLOVIR [Concomitant]
     Route: 065
  5. LOTREL [Concomitant]
     Route: 065
  6. IBUPROFEN [Concomitant]
     Indication: BACK PAIN
     Route: 065
     Dates: start: 19950501
  7. IBUPROFEN [Concomitant]
     Route: 065
     Dates: start: 20000401, end: 20050816
  8. IBUPROFEN [Concomitant]
     Route: 065
     Dates: start: 20000401, end: 20050816
  9. CARISOPRODOL [Concomitant]
     Indication: BACK PAIN
     Route: 065
     Dates: start: 20000401, end: 20050816
  10. LIPITOR [Concomitant]
     Indication: BLOOD CHOLESTEROL NORMAL
     Route: 065
     Dates: start: 19950501

REACTIONS (6)
  - CORONARY ARTERY RESTENOSIS [None]
  - DYSPEPSIA [None]
  - HEAT EXHAUSTION [None]
  - HERPES VIRUS INFECTION [None]
  - HYPERTENSION [None]
  - MYOCARDIAL INFARCTION [None]
